FAERS Safety Report 7476482-8 (Version None)
Quarter: 2011Q2

REPORT INFORMATION
  Report Type: 
  Country: None (occurrence: None)
  Receive Date: 20110510
  Receipt Date: 20110510
  Transmission Date: 20111010
  Serious: Yes (Hospitalization)
  Sender: FDA-Public Use
  Company Number: None

PATIENT
  Age: 64 Year
  Sex: Male
  Weight: 54 kg

DRUGS (1)
  1. LITHIUM CARBONATE [Suspect]
     Indication: POST-TRAUMATIC STRESS DISORDER
     Dosage: 900 MG HS PO
     Route: 048
     Dates: end: 20100930

REACTIONS (4)
  - HAEMODIALYSIS [None]
  - TOXICITY TO VARIOUS AGENTS [None]
  - HYPERTHYROIDISM [None]
  - RENAL FAILURE ACUTE [None]
